FAERS Safety Report 9787097 (Version 2)
Quarter: 2013Q4

REPORT INFORMATION
  Report Type: Report from Study
  Country: US (occurrence: US)
  Receive Date: 20131228
  Receipt Date: 20131228
  Transmission Date: 20140711
  Serious: Yes (Hospitalization, Other)
  Sender: FDA-Public Use
  Company Number: US-ROCHE-1263575

PATIENT
  Age: 73 Year
  Sex: Female

DRUGS (5)
  1. BEVACIZUMAB [Suspect]
     Indication: NON-SMALL CELL LUNG CANCER
     Dosage: OVER 30 MIN ON DAY 1
     Route: 042
     Dates: start: 20130620
  2. BEVACIZUMAB [Suspect]
     Route: 042
  3. PACLITAXEL [Suspect]
     Indication: NON-SMALL CELL LUNG CANCER
     Dosage: OVER 3 HOURS ON DAY 1
     Route: 042
     Dates: start: 20130620
  4. CARBOPLATIN [Suspect]
     Indication: NON-SMALL CELL LUNG CANCER
     Dosage: AUC 6, OVER 30 MINUTE ON DAY 1
     Route: 042
     Dates: start: 20130620
  5. CIXUTUMUMAB [Suspect]
     Indication: NON-SMALL CELL LUNG CANCER
     Dosage: OVER 1 HOUR ON DAYS 1, 8 AND 15, LAST DOSE PRIOR TO SAE: 20-6-2013
     Route: 042
     Dates: start: 20130620

REACTIONS (6)
  - Colitis [Recovered/Resolved]
  - Neutrophil count decreased [Recovered/Resolved]
  - Sepsis [Recovered/Resolved]
  - Atrial flutter [Recovered/Resolved]
  - Hypoxia [Recovered/Resolved]
  - Rectal haemorrhage [Recovered/Resolved]
